FAERS Safety Report 22645879 (Version 2)
Quarter: 2023Q2

REPORT INFORMATION
  Report Type: Spontaneous
  Country: US (occurrence: US)
  Receive Date: 20230627
  Receipt Date: 20230628
  Transmission Date: 20230722
  Serious: No
  Sender: FDA-Public Use
  Company Number: US-ABBVIE-5305601

PATIENT
  Age: 56 Year
  Sex: Female
  Weight: 114.3 kg

DRUGS (10)
  1. SAPHRIS [Suspect]
     Active Substance: ASENAPINE MALEATE
     Indication: Insomnia
     Dosage: 2.5 MILLIGRAM, FOR BACK PAIN, HELP SLEEP
     Route: 048
     Dates: start: 202302
  2. SAPHRIS [Suspect]
     Active Substance: ASENAPINE MALEATE
     Indication: Insomnia
     Dosage: 10 MILLIGRAM, FOR BIPOLAR DISORDER
     Route: 048
     Dates: start: 2011, end: 202302
  3. ATORVASTATIN [Concomitant]
     Active Substance: ATORVASTATIN
     Indication: Blood cholesterol increased
  4. LIPITOR [Concomitant]
     Active Substance: ATORVASTATIN CALCIUM
     Indication: Blood cholesterol increased
  5. METOPROLOL [Concomitant]
     Active Substance: METOPROLOL
     Indication: Hypertension
  6. CYMBALTA [Concomitant]
     Active Substance: DULOXETINE HYDROCHLORIDE
     Indication: Back pain
  7. PRINIVIL [Concomitant]
     Active Substance: LISINOPRIL
     Indication: Hypertension
  8. CLARITIN [Concomitant]
     Active Substance: LORATADINE
     Indication: Hypersensitivity
  9. BACLOFEN [Concomitant]
     Active Substance: BACLOFEN
     Indication: Muscle spasms
  10. TYLENOL [Concomitant]
     Active Substance: ACETAMINOPHEN
     Indication: Pain

REACTIONS (11)
  - Gait disturbance [Unknown]
  - Photophobia [Unknown]
  - Off label use [Not Recovered/Not Resolved]
  - Brain fog [Not Recovered/Not Resolved]
  - Somnolence [Unknown]
  - Impaired driving ability [Not Recovered/Not Resolved]
  - Dysarthria [Unknown]
  - Unevaluable event [Not Recovered/Not Resolved]
  - Disturbance in attention [Unknown]
  - Product quality issue [Unknown]
  - Vision blurred [Unknown]

NARRATIVE: CASE EVENT DATE: 20230623
